FAERS Safety Report 18316225 (Version 3)
Quarter: 2023Q4

REPORT INFORMATION
  Report Type: Spontaneous
  Country: CA (occurrence: None)
  Receive Date: 20200927
  Receipt Date: 20231121
  Transmission Date: 20240110
  Serious: Yes (Hospitalization, Other)
  Sender: FDA-Public Use
  Company Number: 2020SF19774

PATIENT
  Age: 49 Year
  Sex: Female
  Weight: 70 kg

DRUGS (38)
  1. LOSEC [Suspect]
     Active Substance: OMEPRAZOLE
     Indication: Product used for unknown indication
     Route: 048
  2. QUETIAPINE FUMARATE [Suspect]
     Active Substance: QUETIAPINE FUMARATE
     Indication: Product used for unknown indication
     Route: 048
     Dates: end: 201401
  3. ACTEMRA [Suspect]
     Active Substance: TOCILIZUMAB
     Indication: Rheumatoid arthritis
     Route: 042
  4. ACTEMRA [Suspect]
     Active Substance: TOCILIZUMAB
     Indication: Rheumatoid arthritis
     Route: 042
  5. ACTEMRA [Suspect]
     Active Substance: TOCILIZUMAB
     Indication: Rheumatoid arthritis
     Route: 042
     Dates: start: 20110919, end: 201109
  6. ACTEMRA [Suspect]
     Active Substance: TOCILIZUMAB
     Indication: Rheumatoid arthritis
     Route: 042
  7. ACTEMRA [Suspect]
     Active Substance: TOCILIZUMAB
     Indication: Rheumatoid arthritis
     Route: 042
  8. ACTEMRA [Suspect]
     Active Substance: TOCILIZUMAB
     Indication: Rheumatoid arthritis
     Route: 042
  9. ACTEMRA [Suspect]
     Active Substance: TOCILIZUMAB
     Indication: Rheumatoid arthritis
     Route: 042
  10. ACTEMRA [Suspect]
     Active Substance: TOCILIZUMAB
     Indication: Rheumatoid arthritis
     Route: 042
  11. RITUXIMAB [Suspect]
     Active Substance: RITUXIMAB
     Indication: Rheumatoid arthritis
     Route: 042
  12. RITUXIMAB [Suspect]
     Active Substance: RITUXIMAB
     Indication: Rheumatoid arthritis
     Dosage: 1000.0MG UNKNOWN
     Route: 042
  13. RITUXIMAB [Suspect]
     Active Substance: RITUXIMAB
     Indication: Rheumatoid arthritis
     Dosage: 458.0MG UNKNOWN
     Route: 042
  14. RITUXIMAB [Suspect]
     Active Substance: RITUXIMAB
     Indication: Rheumatoid arthritis
     Dosage: 220.0MG UNKNOWN
     Route: 042
  15. RITUXIMAB [Suspect]
     Active Substance: RITUXIMAB
     Indication: Rheumatoid arthritis
     Dosage: 440.0MG UNKNOWN
     Route: 042
  16. RITUXIMAB [Suspect]
     Active Substance: RITUXIMAB
     Indication: Rheumatoid arthritis
     Dosage: 1000.0MG UNKNOWN
     Route: 042
  17. RITUXIMAB [Suspect]
     Active Substance: RITUXIMAB
     Indication: Rheumatoid arthritis
     Dosage: UNKNOWN
     Route: 042
  18. RITUXIMAB [Suspect]
     Active Substance: RITUXIMAB
     Indication: Rheumatoid arthritis
     Dosage: 1000.0MG UNKNOWN
     Route: 042
  19. RITUXIMAB [Suspect]
     Active Substance: RITUXIMAB
     Indication: Rheumatoid arthritis
     Dosage: 416.0MG UNKNOWN
     Route: 042
  20. RITUXIMAB [Suspect]
     Active Substance: RITUXIMAB
     Indication: Rheumatoid arthritis
     Dosage: 433.0MG UNKNOWN
     Route: 042
  21. RITUXIMAB [Suspect]
     Active Substance: RITUXIMAB
     Indication: Rheumatoid arthritis
     Dosage: 472.0MG UNKNOWN
     Route: 042
     Dates: start: 20170621
  22. RITUXIMAB [Suspect]
     Active Substance: RITUXIMAB
     Indication: Rheumatoid arthritis
     Dosage: 237.0MG UNKNOWN
     Route: 042
  23. RITUXIMAB [Suspect]
     Active Substance: RITUXIMAB
     Indication: Rheumatoid arthritis
     Dosage: 437.0MG UNKNOWN
     Route: 042
  24. ACETAMINOPHEN [Concomitant]
     Active Substance: ACETAMINOPHEN
     Route: 048
  25. ACETAMINOPHEN [Concomitant]
     Active Substance: ACETAMINOPHEN
     Route: 048
  26. AMLODIPINE BESYLATE [Concomitant]
     Active Substance: AMLODIPINE BESYLATE
  27. ARAVA [Concomitant]
     Active Substance: LEFLUNOMIDE
  28. ETIDRONIC ACID/CALCIUM CARBONATE [Concomitant]
  29. CIPRALEX[ESCITALOPRAM] [Concomitant]
  30. DIPHENHYDRAMINE HYDROCHLORIDE [Concomitant]
     Active Substance: DIPHENHYDRAMINE HYDROCHLORIDE
     Route: 048
  31. ELAVIL [Concomitant]
     Active Substance: AMITRIPTYLINE HYDROCHLORIDE
  32. FOLIC ACID [Concomitant]
     Active Substance: FOLIC ACID
  33. METHOTREXATE [Concomitant]
     Active Substance: METHOTREXATE
     Route: 058
  34. METHYLPREDNISOLONE [Concomitant]
     Active Substance: METHYLPREDNISOLONE
     Route: 042
  35. METHYLPREDNISOLONE [Concomitant]
     Active Substance: METHYLPREDNISOLONE
     Route: 042
  36. PERINDOPRIL [Concomitant]
     Active Substance: PERINDOPRIL
  37. ZOLPIDEM TARTRATE [Concomitant]
     Active Substance: ZOLPIDEM TARTRATE
  38. PREDNISONE [Concomitant]
     Active Substance: PREDNISONE

REACTIONS (29)
  - Abdominal pain [Unknown]
  - Arthralgia [Unknown]
  - Drug hypersensitivity [Not Recovered/Not Resolved]
  - Headache [Unknown]
  - Ankle arthroplasty [Recovering/Resolving]
  - Blood pressure diastolic increased [Unknown]
  - Blood pressure systolic abnormal [Unknown]
  - Blood pressure increased [Unknown]
  - Blood pressure systolic increased [Not Recovered/Not Resolved]
  - Blood pressure fluctuation [Unknown]
  - Chronic cutaneous lupus erythematosus [Unknown]
  - Device occlusion [Unknown]
  - Dyspnoea [Unknown]
  - Ear pruritus [Recovered/Resolved]
  - Heart rate increased [Not Recovered/Not Resolved]
  - Infusion related reaction [Recovered/Resolved]
  - Musculoskeletal stiffness [Unknown]
  - Nasopharyngitis [Not Recovered/Not Resolved]
  - Onychomycosis [Unknown]
  - Oxygen saturation decreased [Unknown]
  - Pain [Unknown]
  - Poor venous access [Unknown]
  - Restless legs syndrome [Unknown]
  - Rheumatoid arthritis [Unknown]
  - Throat irritation [Recovered/Resolved]
  - Weight increased [Not Recovered/Not Resolved]
  - Drug hypersensitivity [Unknown]
  - Heart rate increased [Unknown]
  - Drug ineffective [Not Recovered/Not Resolved]

NARRATIVE: CASE EVENT DATE: 20110824
